FAERS Safety Report 4628597-7 (Version None)
Quarter: 2005Q2

REPORT INFORMATION
  Report Type: 
  Country: None (occurrence: None)
  Receive Date: 20050404
  Receipt Date: 20050321
  Transmission Date: 20051028
  Serious: Yes (Life-Threatening)
  Sender: FDA-Public Use
  Company Number: NL-2005-003531

PATIENT
  Age: 42 Year
  Sex: Male

DRUGS (3)
  1. FLUDARA [Suspect]
     Indication: NON-HODGKIN'S LYMPHOMA
     Dosage: CYCLES, ORAL
     Route: 048
     Dates: start: 20050104, end: 20050108
  2. FLUDARA [Suspect]
     Indication: NON-HODGKIN'S LYMPHOMA
     Dosage: CYCLES, ORAL
     Route: 048
     Dates: start: 20050204, end: 20050208
  3. CO-TRIMOXAZOLE(CO-TRIMOXAZOLE)TABLET [Concomitant]

REACTIONS (1)
  - PEMPHIGUS [None]
